FAERS Safety Report 21320439 (Version 1)
Quarter: 2022Q3

REPORT INFORMATION
  Report Type: Spontaneous
  Country: DE (occurrence: DE)
  Receive Date: 20220911
  Receipt Date: 20220911
  Transmission Date: 20221027
  Serious: Yes (Other)
  Sender: FDA-Public Use
  Company Number: DE-JNJFOC-20200429464

PATIENT
  Sex: Female

DRUGS (1)
  1. VERMOX [Suspect]
     Active Substance: MEBENDAZOLE
     Indication: Weight decreased
     Route: 048

REACTIONS (3)
  - Drug abuse [Unknown]
  - Product use in unapproved indication [Unknown]
  - Off label use [Unknown]
